FAERS Safety Report 9860578 (Version 2)
Quarter: 2014Q1

REPORT INFORMATION
  Report Type: Spontaneous
  Country: US (occurrence: US)
  Receive Date: 20140202
  Receipt Date: 20140314
  Transmission Date: 20141002
  Serious: No
  Sender: FDA-Public Use
  Company Number: US-009507513-1401USA011003

PATIENT
  Age: 36 Year
  Sex: Female
  Weight: 65.76 kg

DRUGS (1)
  1. NEXPLANON [Suspect]
     Indication: CONTRACEPTION
     Dosage: SINGLE ROD (68 MG), SUBDERMAL IN LEFT ARM
     Route: 059
     Dates: start: 20140106

REACTIONS (6)
  - Implant site swelling [Recovering/Resolving]
  - Implant site warmth [Recovering/Resolving]
  - Implant site pruritus [Recovering/Resolving]
  - Implant site erythema [Recovering/Resolving]
  - Implant site rash [Recovered/Resolved]
  - Influenza like illness [Recovered/Resolved]
